FAERS Safety Report 4541691-4 (Version None)
Quarter: 2004Q4

REPORT INFORMATION
  Report Type: 
  Country: None (occurrence: None)
  Receive Date: 20041230
  Receipt Date: 20041220
  Transmission Date: 20050328
  Serious: Yes (Hospitalization)
  Sender: FDA-Public Use
  Company Number: US-JNJFOC-20041008140

PATIENT
  Sex: Male
  Weight: 68.95 kg

DRUGS (7)
  1. REMICADE [Suspect]
     Route: 042
  2. REMICADE [Suspect]
     Route: 042
  3. REMICADE [Suspect]
     Indication: CROHN'S DISEASE
     Route: 042
  4. IMURAN [Concomitant]
     Indication: CROHN'S DISEASE
  5. PREDNISONE [Concomitant]
     Indication: CROHN'S DISEASE
  6. PENTASA [Concomitant]
     Dosage: 1 DOSE= 1 TABLET
  7. NEXIUM [Concomitant]

REACTIONS (6)
  - ANAEMIA [None]
  - BICYTOPENIA [None]
  - DRUG INEFFECTIVE [None]
  - EPISTAXIS [None]
  - HISTOPLASMOSIS [None]
  - RASH [None]
